FAERS Safety Report 13639530 (Version 1)
Quarter: 2017Q2

REPORT INFORMATION
  Report Type: Spontaneous
  Country: US (occurrence: US)
  Receive Date: 20170609
  Receipt Date: 20170609
  Transmission Date: 20170830
  Serious: No
  Sender: FDA-Public Use
  Company Number: US-ROCHE-1177842

PATIENT
  Sex: Female

DRUGS (1)
  1. KLONOPIN [Suspect]
     Active Substance: CLONAZEPAM
     Indication: BALANCE DISORDER
     Route: 065

REACTIONS (9)
  - Dizziness [Unknown]
  - Fatigue [Unknown]
  - Anxiety [Unknown]
  - Sinusitis [Unknown]
  - Emotional disorder [Unknown]
  - Aphonia [Unknown]
  - Crying [Unknown]
  - Chest discomfort [Unknown]
  - Labyrinthitis [Unknown]
